FAERS Safety Report 8552817-X (Version None)
Quarter: 2012Q3

REPORT INFORMATION
  Report Type: 
  Country: None (occurrence: None)
  Receive Date: 20120731
  Receipt Date: 20120717
  Transmission Date: 20120928
  Serious: Yes (Hospitalization)
  Sender: FDA-Public Use
  Company Number: AT-MYLANLABS-2012S1014925

PATIENT
  Age: 39 Year
  Sex: Female

DRUGS (14)
  1. ARIPIPRAZOLE [Suspect]
     Dosage: 15MG END WEEK 5/START WEEK 6
     Route: 065
  2. ARIPIPRAZOLE [Suspect]
     Dosage: 20MG IN WEEK 6
     Route: 065
  3. ARIPIPRAZOLE [Suspect]
     Dosage: 30MG IN WEEK 6
     Route: 065
  4. VENLAFAXINE [Concomitant]
     Indication: DEPRESSION
     Dosage: 150MG
     Route: 065
  5. MIRTAZAPINE [Concomitant]
     Dosage: 15MG
     Route: 065
  6. ARIPIPRAZOLE [Suspect]
     Indication: PSYCHOTIC DISORDER
     Dosage: INITIATED AT 5MG END WEEK 3/START WEEK 4
     Route: 065
  7. ARIPIPRAZOLE [Suspect]
     Dosage: 10MG END WEEK 4/START WEEK 5
     Route: 065
  8. LORAZEPAM [Concomitant]
     Dosage: 4MG
     Route: 065
  9. HALOPERIDOL [Concomitant]
     Indication: PSYCHOTIC DISORDER
     Route: 065
  10. VENLAFAXINE [Concomitant]
     Dosage: 225MG
     Route: 065
  11. MIRTAZAPINE [Concomitant]
     Dosage: 30MG
     Route: 065
  12. LORAZEPAM [Concomitant]
     Dosage: 2.5MG
     Route: 065
  13. BISOPROLOL FUMARATE [Concomitant]
     Dosage: 5MG WEEKS 1-5
     Route: 065
  14. RISPERIDONE [Suspect]
     Indication: PSYCHOTIC DISORDER
     Dosage: 4MG
     Route: 065

REACTIONS (2)
  - ACUTE PSYCHOSIS [None]
  - GALACTORRHOEA [None]
